FAERS Safety Report 17034197 (Version 2)
Quarter: 2019Q4

REPORT INFORMATION
  Report Type: Report from Study
  Country: US (occurrence: US)
  Receive Date: 20191114
  Receipt Date: 20191230
  Transmission Date: 20200122
  Serious: Yes (Hospitalization, Other)
  Sender: FDA-Public Use
  Company Number: US-B.I. PHARMACEUTICALS,INC./RIDGEFIELD-2019-BI-113055

PATIENT
  Sex: Male

DRUGS (1)
  1. OFEV [Suspect]
     Active Substance: NINTEDANIB
     Indication: INTERSTITIAL LUNG DISEASE
     Dosage: 150MG BY MOUTH TWICE A DAY 12 HOURS APART WITH FOOD
     Route: 048

REACTIONS (9)
  - Nasal dryness [Unknown]
  - Diarrhoea [Not Recovered/Not Resolved]
  - Poor quality sleep [Unknown]
  - Eating disorder [Unknown]
  - Oxygen saturation abnormal [Unknown]
  - Depression [Not Recovered/Not Resolved]
  - Haemoptysis [Not Recovered/Not Resolved]
  - Cough [Unknown]
  - Dizziness [Unknown]
